FAERS Safety Report 5087143-7 (Version None)
Quarter: 2006Q3

REPORT INFORMATION
  Report Type: 
  Country: None (occurrence: None)
  Receive Date: 20060821
  Receipt Date: 20060803
  Transmission Date: 20061208
  Serious: Yes (Hospitalization, Other)
  Sender: FDA-Public Use
  Company Number: DE-2006-008345

PATIENT
  Age: 19 Year
  Sex: Female

DRUGS (3)
  1. BETAFERON (INTERFERON BETA - 1B) INJECTION, 250?G [Suspect]
     Indication: MULTIPLE SCLEROSIS
     Dosage: 9.6 MIU, EVERY 2D, SUBCUTANEOUS
     Route: 058
     Dates: start: 20060101, end: 20060423
  2. PARACETAMOL [Concomitant]
  3. TOPAMAX (TOPIRIAMATE) [Concomitant]

REACTIONS (11)
  - ABASIA [None]
  - ABNORMAL BEHAVIOUR [None]
  - ANXIETY [None]
  - DELUSION [None]
  - DEPRESSION [None]
  - EPILEPSY [None]
  - HALLUCINATION [None]
  - ILLUSION [None]
  - INSOMNIA [None]
  - MUSCLE SPASMS [None]
  - PSYCHOTIC DISORDER [None]
